FAERS Safety Report 17719754 (Version 11)
Quarter: 2021Q2

REPORT INFORMATION
  Report Type: Report from Study
  Country: CA (occurrence: CA)
  Receive Date: 20200428
  Receipt Date: 20210627
  Transmission Date: 20210716
  Serious: Yes (Hospitalization, Other)
  Sender: FDA-Public Use
  Company Number: PHHY2019CA077084

PATIENT
  Age: 79 Year
  Sex: Female

DRUGS (10)
  1. SANDOSTATIN LAR DEPOT [Suspect]
     Active Substance: OCTREOTIDE ACETATE
     Indication: CARCINOID SYNDROME
     Dosage: 30 MG, QMO (EVERY 4 WEEKS)
     Route: 030
     Dates: start: 20190225
  2. AMLODIPINE [Concomitant]
     Active Substance: AMLODIPINE BESYLATE
     Indication: BLOOD PRESSURE ABNORMAL
     Dosage: 2.5 MG, BID
     Route: 065
     Dates: start: 2019
  3. AMLODIPINE [Concomitant]
     Active Substance: AMLODIPINE BESYLATE
     Dosage: UNK (ROSUVASTATIN AND AMLODIPINE TOGETHER AT BEDTIME)
     Route: 065
  4. SANDOSTATIN LAR DEPOT [Suspect]
     Active Substance: OCTREOTIDE ACETATE
  5. ROSUVASTATINE [Concomitant]
     Active Substance: ROSUVASTATIN
     Dosage: UNK (ROSUVASTATIN AND AMLODIPINE TOGETHER AT BEDTIME)
     Route: 065
  6. ROSUVASTATINE [Concomitant]
     Active Substance: ROSUVASTATIN
     Indication: PRODUCT USED FOR UNKNOWN INDICATION
     Dosage: UNK, QD (IN THE AM)
     Route: 065
  7. PREDNISONE. [Concomitant]
     Active Substance: PREDNISONE
     Indication: PRODUCT USED FOR UNKNOWN INDICATION
     Dosage: 50 MG, QD (FOR 5 DAYS)
     Route: 065
     Dates: start: 20191007
  8. MUPIROCIN. [Concomitant]
     Active Substance: MUPIROCIN
     Indication: PRODUCT USED FOR UNKNOWN INDICATION
     Dosage: UNK
     Route: 061
  9. ADALAT [Concomitant]
     Active Substance: NIFEDIPINE
     Indication: BLOOD PRESSURE ABNORMAL
     Dosage: UNK
     Route: 065
     Dates: end: 2019
  10. SANDOSTATIN LAR DEPOT [Suspect]
     Active Substance: OCTREOTIDE ACETATE

REACTIONS (26)
  - Intestinal obstruction [Unknown]
  - Cystitis [Recovered/Resolved]
  - Poor quality sleep [Unknown]
  - Blood magnesium decreased [Unknown]
  - Abdominal pain lower [Recovering/Resolving]
  - Pruritus [Unknown]
  - Hypotension [Unknown]
  - Heart rate increased [Recovering/Resolving]
  - Dizziness [Unknown]
  - Rash [Recovered/Resolved]
  - Chest pain [Unknown]
  - Chest discomfort [Unknown]
  - Rash [Unknown]
  - Constipation [Unknown]
  - Decreased appetite [Unknown]
  - Cardiomegaly [Unknown]
  - Chronic obstructive pulmonary disease [Unknown]
  - Swelling [Unknown]
  - Dysarthria [Unknown]
  - Faeces discoloured [Unknown]
  - Dyspnoea [Recovering/Resolving]
  - Pneumonia [Recovering/Resolving]
  - Hypertension [Recovering/Resolving]
  - Blood pressure systolic increased [Recovering/Resolving]
  - Contusion [Unknown]
  - Abdominal pain [Unknown]

NARRATIVE: CASE EVENT DATE: 2019
